FAERS Safety Report 7592307-4 (Version None)
Quarter: 2011Q3

REPORT INFORMATION
  Report Type: 
  Country: None (occurrence: None)
  Receive Date: 20110706
  Receipt Date: 20110629
  Transmission Date: 20111222
  Serious: Yes (Other)
  Sender: FDA-Public Use
  Company Number: GR-BRISTOL-MYERS SQUIBB COMPANY-15862519

PATIENT
  Age: 60 Year
  Sex: Female

DRUGS (6)
  1. CALCIUM CARBONATE [Concomitant]
  2. ORENCIA [Suspect]
     Indication: RHEUMATOID ARTHRITIS
     Dosage: OVER 2 YEARS
     Route: 042
  3. CORTISONE ACETATE [Concomitant]
  4. METHOTREXATE [Concomitant]
  5. LADOSE [Concomitant]
  6. ACTONEL [Concomitant]

REACTIONS (1)
  - TUBERCULIN TEST [None]
